FAERS Safety Report 6924240 (Version 4)
Quarter: 2017Q1

REPORT INFORMATION
  Report Type: Report from Study
  Country: US (occurrence: US)
  Receive Date: 20090227
  Receipt Date: 20170208
  Transmission Date: 20170429
  Serious: Yes (Hospitalization)
  Sender: FDA-Public Use
  Company Number: PHHO2009US01366

PATIENT
  Age: 56 Year
  Sex: Male
  Weight: 61.22 kg

DRUGS (28)
  1. NEXIUM [Concomitant]
     Active Substance: ESOMEPRAZOLE MAGNESIUM
  2. TYLENOL [Concomitant]
     Active Substance: ACETAMINOPHEN
  3. PREDNISONE. [Concomitant]
     Active Substance: PREDNISONE
  4. SILDENAFIL. [Concomitant]
     Active Substance: SILDENAFIL
  5. CITRACAL [Concomitant]
     Active Substance: CALCIUM CITRATE
  6. DRISDOL [Suspect]
     Active Substance: ERGOCALCIFEROL
     Dosage: 50,000 UNITS A DAY FOR 5 DAYS
     Route: 065
     Dates: start: 20081218
  7. SYNTHROID [Concomitant]
     Active Substance: LEVOTHYROXINE SODIUM
  8. LANTUS [Concomitant]
     Active Substance: INSULIN GLARGINE
  9. MATERNA [Concomitant]
     Active Substance: MINERALS\VITAMINS
  10. ASPIRIN. [Concomitant]
     Active Substance: ASPIRIN
  11. CYCLOSPORINE. [Suspect]
     Active Substance: CYCLOSPORINE
     Indication: TRANSPLANT
     Route: 065
  12. CALCIUM [Concomitant]
     Active Substance: CALCIUM
  13. CELLCEPT [Concomitant]
     Active Substance: MYCOPHENOLATE MOFETIL\MYCOPHENOLATE MOFETIL HYDROCHLORIDE
  14. MYCOSTATIN [Concomitant]
     Active Substance: NYSTATIN
  15. VALCYTE [Concomitant]
     Active Substance: VALGANCICLOVIR HYDROCHLORIDE
  16. IRON [Concomitant]
     Active Substance: IRON
  17. ATOVAQUONE. [Concomitant]
     Active Substance: ATOVAQUONE
  18. PRENATAL [Concomitant]
     Active Substance: VITAMINS
  19. ACLASTA [Suspect]
     Active Substance: ZOLEDRONIC ACID
     Indication: ORGAN TRANSPLANT
     Dosage: 5 MG, UNK
     Route: 042
     Dates: start: 20081229, end: 20090122
  20. VITAMIN D [Concomitant]
     Active Substance: CHOLECALCIFEROL
  21. LIPITOR [Concomitant]
     Active Substance: ATORVASTATIN CALCIUM
  22. KLONOPIN [Concomitant]
     Active Substance: CLONAZEPAM
  23. SENNA [Concomitant]
     Active Substance: SENNA LEAF\SENNOSIDES\SENNOSIDES A AND B
  24. MEPRON [Concomitant]
     Active Substance: ATOVAQUONE
  25. ASA [Concomitant]
     Active Substance: ASPIRIN
  26. PERCOCET [Concomitant]
     Active Substance: ACETAMINOPHEN\OXYCODONE HYDROCHLORIDE
  27. ALENDRONATE SODIUM. [Concomitant]
     Active Substance: ALENDRONATE SODIUM
  28. TRAZODONE [Concomitant]
     Active Substance: TRAZODONE HYDROCHLORIDE

REACTIONS (16)
  - Dyspnoea [Recovering/Resolving]
  - Flank pain [Recovering/Resolving]
  - Renal atrophy [Recovering/Resolving]
  - Staphylococcal bacteraemia [Recovering/Resolving]
  - Renal impairment [Recovering/Resolving]
  - Sepsis [Recovering/Resolving]
  - Neutropenia [Recovering/Resolving]
  - Empyema [Recovering/Resolving]
  - Nephrolithiasis [Recovering/Resolving]
  - Toxicity to various agents [Recovering/Resolving]
  - Dizziness [Recovering/Resolving]
  - Pleural effusion [Recovering/Resolving]
  - Renal disorder [Recovering/Resolving]
  - Urethral dilatation [Recovering/Resolving]
  - Aspiration pleural cavity [Recovering/Resolving]
  - Catheterisation cardiac [Recovering/Resolving]

NARRATIVE: CASE EVENT DATE: 20090117
